FAERS Safety Report 18701582 (Version 4)
Quarter: 2021Q2

REPORT INFORMATION
  Report Type: Report from Study
  Country: US (occurrence: US)
  Receive Date: 20210105
  Receipt Date: 20210420
  Transmission Date: 20210717
  Serious: Yes (Death, Hospitalization)
  Sender: FDA-Public Use
  Company Number: US-ROCHE-2734939

PATIENT
  Age: 75 Year
  Sex: Male
  Weight: 97 kg

DRUGS (16)
  1. CHLORTHALIDONE. [Concomitant]
     Active Substance: CHLORTHALIDONE
     Dates: start: 20161011
  2. DULOXETINE. [Concomitant]
     Active Substance: DULOXETINE
     Dates: start: 20190321
  3. LENALIDOMIDE [Suspect]
     Active Substance: LENALIDOMIDE
     Indication: B-CELL LYMPHOMA
     Dosage: AT DOSES OF 10, 15, OR 20 MILLIGRAMS (MG) ON DAYS 1 TO 21 OF EACH 28?DAY CYCLE FOR UP TO 6 CYCLES IN
     Route: 048
     Dates: start: 20171004
  4. POLATUZUMAB VEDOTIN. [Suspect]
     Active Substance: POLATUZUMAB VEDOTIN
     Indication: B-CELL LYMPHOMA
     Dosage: AT DOSES OF 1.4 OR 1.8 MILLIGRAMS PER KILOGRAM (MG/KG) ON DAY 1 OF EACH 28?DAY CYCLE FOR UP TO 6 MON
     Route: 042
     Dates: start: 20171004
  5. GLUCOPHAGE [Concomitant]
     Active Substance: METFORMIN HYDROCHLORIDE
     Dates: start: 20161013
  6. ASPIRIN. [Concomitant]
     Active Substance: ASPIRIN
     Dates: start: 2016
  7. LEVEMIR [Concomitant]
     Active Substance: INSULIN DETEMIR
     Dates: start: 2010
  8. SIMVASTATIN. [Concomitant]
     Active Substance: SIMVASTATIN
     Dates: start: 2016
  9. TOBRAMYCIN SULFATE. [Concomitant]
     Active Substance: TOBRAMYCIN SULFATE
     Dates: start: 20190731
  10. BUDESONIDE. [Concomitant]
     Active Substance: BUDESONIDE
     Dates: start: 2017
  11. CARVEDILOL. [Concomitant]
     Active Substance: CARVEDILOL
  12. OBINUTUZUMAB. [Suspect]
     Active Substance: OBINUTUZUMAB
     Indication: B-CELL LYMPHOMA
     Dosage: ON DAYS 1, 8 AND 15 OF CYCLE 1 AND ON DAY 1 OF CYCLES 2 TO 6 FOLLOWED BY POST?INDUCTION TREATMENT AT
     Route: 042
     Dates: start: 20171004
  13. AMLODIPINE [Concomitant]
     Active Substance: AMLODIPINE BESYLATE
     Dates: start: 2016
  14. BUSPIRONE [Concomitant]
     Active Substance: BUSPIRONE HYDROCHLORIDE
     Dates: start: 20190513
  15. NOVOLOG [Concomitant]
     Active Substance: INSULIN ASPART
     Dates: start: 2010
  16. CYMBALTA [Concomitant]
     Active Substance: DULOXETINE HYDROCHLORIDE
     Dates: start: 2018

REACTIONS (1)
  - COVID-19 [Fatal]

NARRATIVE: CASE EVENT DATE: 20201128
